FAERS Safety Report 18265327 (Version 1)
Quarter: 2020Q3

REPORT INFORMATION
  Report Type: Report from Study
  Country: None (occurrence: US)
  Receive Date: 20200915
  Receipt Date: 20200915
  Transmission Date: 20201103
  Serious: Yes (Other)
  Sender: FDA-Public Use
  Company Number: US-ABBVIE-20K-163-3561266-00

PATIENT
  Sex: Male

DRUGS (1)
  1. HUMIRA [Suspect]
     Active Substance: ADALIMUMAB
     Indication: CROHN^S DISEASE
     Route: 058
     Dates: start: 201812, end: 2020

REACTIONS (4)
  - Fistula [Unknown]
  - Malaise [Not Recovered/Not Resolved]
  - Drug specific antibody present [Unknown]
  - Crohn^s disease [Unknown]
